FAERS Safety Report 19484933 (Version 1)
Quarter: 2021Q3

REPORT INFORMATION
  Report Type: Spontaneous
  Country: AU (occurrence: AU)
  Receive Date: 20210702
  Receipt Date: 20210702
  Transmission Date: 20211014
  Serious: Yes (Hospitalization, Other)
  Sender: FDA-Public Use
  Company Number: AU-ORGANON-1912AUS012640

PATIENT
  Age: 69 Year
  Sex: Female

DRUGS (3)
  1. THYROXIN [Concomitant]
     Active Substance: LEVOTHYROXINE
     Indication: THYROID DISORDER
     Dosage: UNK
     Dates: start: 2004
  2. FOSAMAX PLUS 70 MG/140 MCG [Suspect]
     Active Substance: ALENDRONATE SODIUM\CHOLECALCIFEROL
     Dosage: UNK
     Route: 048
     Dates: start: 1999, end: 2016
  3. FOSAMAX PLUS 70 MG/140 MCG [Suspect]
     Active Substance: ALENDRONATE SODIUM\CHOLECALCIFEROL
     Dosage: UNK
     Route: 048
     Dates: start: 2016

REACTIONS (6)
  - Fall [Unknown]
  - Fall [Unknown]
  - HER2 positive breast cancer [Recovered/Resolved]
  - Osteomalacia [Unknown]
  - Femur fracture [Recovered/Resolved]
  - Femur fracture [Unknown]

NARRATIVE: CASE EVENT DATE: 2007
